FAERS Safety Report 8874015 (Version 2)
Quarter: 2012Q4

REPORT INFORMATION
  Report Type: 
  Country: JP (occurrence: JP)
  Receive Date: 20121030
  Receipt Date: 20121130
  Transmission Date: 20130627
  Serious: Yes (Life-Threatening, Hospitalization, Other)
  Sender: FDA-Public Use
  Company Number: JP-PFIZER INC-2012268202

PATIENT
  Age: 51 Year
  Sex: Female
  Weight: 51 kg

DRUGS (3)
  1. LIPITOR [Suspect]
     Indication: HYPERCHOLESTEROLAEMIA
     Dosage: 10 mg, per day
     Route: 048
     Dates: start: 2006, end: 20121020
  2. PLAVIX [Suspect]
     Indication: ANGINA PECTORIS
     Dosage: 75 mg, 1x/day
     Route: 048
     Dates: start: 2005, end: 20121020
  3. ZETIA [Suspect]
     Indication: HYPERCHOLESTEROLAEMIA
     Dosage: 10 mg, 1x/day
     Route: 048
     Dates: start: 201110, end: 20121020

REACTIONS (8)
  - Granulocytopenia [Recovered/Resolved]
  - Pyrexia [Recovered/Resolved]
  - Pharyngeal erythema [Recovered/Resolved]
  - Oropharyngeal pain [Recovered/Resolved]
  - Cough [Recovered/Resolved]
  - Diarrhoea [Recovered/Resolved]
  - Vomiting [Recovered/Resolved]
  - Chills [Recovered/Resolved]
